FAERS Safety Report 8954043 (Version 1)
Quarter: 2012Q4

REPORT INFORMATION
  Report Type: 
  Country: FR (occurrence: FR)
  Receive Date: 20121207
  Receipt Date: 20121207
  Transmission Date: 20130627
  Serious: Yes (Death, Other)
  Sender: FDA-Public Use
  Company Number: FR-BRISTOL-MYERS SQUIBB COMPANY-17165077

PATIENT
  Age: 84 Year
  Sex: Male

DRUGS (1)
  1. COUMADINE [Suspect]
     Dosage: 1 df= 1 tabs
     Route: 048
     Dates: start: 20120823, end: 20120909

REACTIONS (6)
  - Death [Fatal]
  - Renal failure acute [Unknown]
  - Pneumonia aspiration [Unknown]
  - Upper gastrointestinal haemorrhage [Unknown]
  - International normalised ratio increased [Unknown]
  - Septic shock [Unknown]
